FAERS Safety Report 7117835-7 (Version None)
Quarter: 2010Q4

REPORT INFORMATION
  Report Type: 
  Country: None (occurrence: None)
  Receive Date: 20101118
  Receipt Date: 20101118
  Transmission Date: 20110411
  Serious: Yes (Disabling, Other)
  Sender: FDA-Public Use
  Company Number: None

PATIENT
  Age: 64 Year
  Sex: Female
  Weight: 88.905 kg

DRUGS (3)
  1. IV RECLAST BY NOVARTIS - ZOLEDRONIC ACID - IV [Suspect]
     Indication: OSTEOPOROSIS
     Dosage: 5MG IN 100CC ONCE IV
     Route: 042
     Dates: start: 20100806
  2. PREDNISONE [Concomitant]
  3. ACYCLOVIR [Concomitant]

REACTIONS (5)
  - ARTHRALGIA [None]
  - BODY TEMPERATURE INCREASED [None]
  - BONE PAIN [None]
  - DIZZINESS [None]
  - MYALGIA [None]
